FAERS Safety Report 5415054-3 (Version None)
Quarter: 2007Q3

REPORT INFORMATION
  Report Type: 
  Country: None (occurrence: None)
  Receive Date: 20070813
  Receipt Date: 20070727
  Transmission Date: 20080115
  Serious: Yes (Other)
  Sender: FDA-Public Use
  Company Number: 2007001477

PATIENT
  Sex: Male

DRUGS (1)
  1. MACUGEN [Suspect]
     Indication: RETINAL DISORDER
     Dosage: 0.3 MG (Q6WKS), INTRA-VITREAL
     Dates: start: 20070606

REACTIONS (2)
  - RETINAL HAEMORRHAGE [None]
  - VISUAL ACUITY REDUCED [None]
